FAERS Safety Report 7634208-9 (Version None)
Quarter: 2011Q3

REPORT INFORMATION
  Report Type: 
  Country: None (occurrence: None)
  Receive Date: 20110725
  Receipt Date: 20110509
  Transmission Date: 20111222
  Serious: Yes (Hospitalization)
  Sender: FDA-Public Use
  Company Number: US-B.I. PHARMACEUTICALS,INC./RIDGEFIELD-2011-BP-08688BP

PATIENT
  Sex: Male

DRUGS (6)
  1. ATENOLOL [Concomitant]
     Dosage: 25 MG
     Route: 048
  2. PRADAXA [Suspect]
     Indication: CARDIAC FIBRILLATION
     Dosage: 300 MG
     Route: 048
  3. TYLENOL-500 [Concomitant]
     Route: 048
  4. AMITRIPTYLINE HCL [Concomitant]
     Dosage: 100 MG
     Route: 048
  5. LOSARTAN POTASSIUM [Concomitant]
     Dosage: 100 MG
     Route: 048
  6. DIGOXIN [Concomitant]
     Dosage: 125 MCG
     Route: 048

REACTIONS (2)
  - DYSPEPSIA [None]
  - GASTRIC HAEMORRHAGE [None]
